FAERS Safety Report 8581953-7 (Version None)
Quarter: 2012Q3

REPORT INFORMATION
  Report Type: 
  Country: None (occurrence: None)
  Receive Date: 20120809
  Receipt Date: 20120716
  Transmission Date: 20120928
  Serious: Yes (Other)
  Sender: FDA-Public Use
  Company Number: US-BAYER-2012-080116

PATIENT
  Sex: Male

DRUGS (1)
  1. AVELOX [Suspect]
     Route: 048

REACTIONS (1)
  - BENIGN INTRACRANIAL HYPERTENSION [None]
